FAERS Safety Report 22973088 (Version 2)
Quarter: 2024Q1

REPORT INFORMATION
  Report Type: Report from Study
  Country: BR (occurrence: BR)
  Receive Date: 20230922
  Receipt Date: 20240325
  Transmission Date: 20240410
  Serious: Yes (Hospitalization, Other)
  Sender: FDA-Public Use
  Company Number: BR-002147023-NVSC2023BR205182

PATIENT
  Sex: Male

DRUGS (1)
  1. KESIMPTA [Suspect]
     Active Substance: OFATUMUMAB
     Indication: Multiple sclerosis
     Dosage: 20 MG
     Route: 065
     Dates: start: 20221201

REACTIONS (4)
  - Multiple sclerosis relapse [Recovered/Resolved]
  - Inflammation [Recovered/Resolved]
  - Feeling abnormal [Unknown]
  - Balance disorder [Unknown]

NARRATIVE: CASE EVENT DATE: 20230101
